FAERS Safety Report 21096189 (Version 1)
Quarter: 2022Q3

REPORT INFORMATION
  Report Type: Spontaneous
  Country: US (occurrence: None)
  Receive Date: 20220718
  Receipt Date: 20220718
  Transmission Date: 20221026
  Serious: Yes (Other)
  Sender: FDA-Public Use
  Company Number: None

PATIENT

DRUGS (2)
  1. DEVICE [Suspect]
     Active Substance: DEVICE
     Dates: start: 20220321
  2. MAGNESIUM [Suspect]
     Active Substance: MAGNESIUM

REACTIONS (15)
  - Device delivery system issue [None]
  - Hypersensitivity [None]
  - Flushing [None]
  - Dyspnoea [None]
  - Abdominal pain [None]
  - Device information output issue [None]
  - Extra dose administered [None]
  - Treatment delayed [None]
  - Device difficult to use [None]
  - Device alarm issue [None]
  - Device connection issue [None]
  - Device leakage [None]
  - Incorrect dose administered [None]
  - Device defective [None]
  - Incorrect drug administration rate [None]

NARRATIVE: CASE EVENT DATE: 20220614
